FAERS Safety Report 6773194-0 (Version None)
Quarter: 2010Q2

REPORT INFORMATION
  Report Type: 
  Country: None (occurrence: None)
  Receive Date: 20100616
  Receipt Date: 20100603
  Transmission Date: 20101027
  Serious: Yes (Other)
  Sender: FDA-Public Use
  Company Number: PHHY2010GR36794

PATIENT
  Age: 53 Year
  Sex: Male

DRUGS (6)
  1. CYCLOSPORINE [Suspect]
     Indication: PUSTULAR PSORIASIS
     Dosage: 100 MG/DAILY
     Route: 048
  2. INFLIXIMAB [Suspect]
     Indication: ANKYLOSING SPONDYLITIS
     Dosage: 5 MG/KG, UNK
  3. NSAID'S [Concomitant]
  4. ANALGESICS [Concomitant]
  5. ADALIMUMAB [Concomitant]
     Dosage: 40 MG, EVERY OTHER 2 WEEKS
     Route: 058
  6. ETANERCEPT [Concomitant]

REACTIONS (4)
  - ANAPHYLACTIC REACTION [None]
  - DISEASE PROGRESSION [None]
  - PUSTULAR PSORIASIS [None]
  - SKIN LESION [None]
